FAERS Safety Report 23591814 (Version 1)
Quarter: 2024Q1

REPORT INFORMATION
  Report Type: Spontaneous
  Country: US (occurrence: US)
  Receive Date: 20240304
  Receipt Date: 20240304
  Transmission Date: 20240410
  Serious: Yes (Other)
  Sender: FDA-Public Use
  Company Number: US-VERTEX PHARMACEUTICALS-2024-003513

PATIENT

DRUGS (2)
  1. TRIKAFTA [Suspect]
     Active Substance: ELEXACAFTOR\IVACAFTOR\TEZACAFTOR
     Indication: Cystic fibrosis
     Dosage: FULL DOSE
     Route: 048
  2. TRIKAFTA [Suspect]
     Active Substance: ELEXACAFTOR\IVACAFTOR\TEZACAFTOR
     Dosage: HALF DOSE - JUST ORANGE PILLS TWICE A WEEK
     Route: 048

REACTIONS (4)
  - Transplant [Unknown]
  - Attention deficit hyperactivity disorder [Not Recovered/Not Resolved]
  - Mental disorder [Unknown]
  - Feeling abnormal [Not Recovered/Not Resolved]
